FAERS Safety Report 8273954-3 (Version None)
Quarter: 2012Q2

REPORT INFORMATION
  Report Type: 
  Country: None (occurrence: None)
  Receive Date: 20120406
  Receipt Date: 20120406
  Transmission Date: 20120825
  Serious: Yes (Other)
  Sender: FDA-Public Use
  Company Number: None

PATIENT
  Sex: Female
  Weight: 72.5755 kg

DRUGS (2)
  1. SULFAMETHOXAZOLE AND TRIMETHOPRIM [Suspect]
     Indication: EAR DISORDER
     Dosage: 2X   MAR. 8-15/ MARCH 19
  2. SULFAMETHOXAZOLE AND TRIMETHOPRIM [Suspect]
     Indication: BRONCHITIS
     Dosage: 2X   MAR. 8-15/ MARCH 19

REACTIONS (6)
  - DECREASED APPETITE [None]
  - ABDOMINAL PAIN UPPER [None]
  - MALAISE [None]
  - VOMITING [None]
  - DIARRHOEA [None]
  - HEADACHE [None]
